FAERS Safety Report 12414690 (Version 1)
Quarter: 2016Q2

REPORT INFORMATION
  Report Type: Report from Study
  Country: FR (occurrence: FR)
  Receive Date: 20160528
  Receipt Date: 20160528
  Transmission Date: 20160815
  Serious: Yes (Hospitalization, Other)
  Sender: FDA-Public Use
  Company Number: FR-009507513-1605FRA012804

PATIENT
  Age: 48 Year
  Sex: Female

DRUGS (16)
  1. METHOTREXATE [Concomitant]
     Active Substance: METHOTREXATE
     Dosage: DAILY DOSE 10 MG
  2. RITUXIMAB [Suspect]
     Active Substance: RITUXIMAB
     Dosage: 1 G, CYCLICAL (DAY 1)
     Route: 041
     Dates: start: 201101, end: 201101
  3. CORTANCYL [Concomitant]
     Active Substance: PREDNISONE
     Dosage: 7.5 MG, QD
  4. CORTANCYL [Concomitant]
     Active Substance: PREDNISONE
     Dosage: 6 MG, QD
  5. RIBAVIRIN. [Suspect]
     Active Substance: RIBAVIRIN
     Indication: HEPATITIS C
     Dosage: UNK
     Route: 048
     Dates: start: 20110416
  6. RITUXIMAB [Suspect]
     Active Substance: RITUXIMAB
     Indication: RHEUMATOID ARTHRITIS
     Dosage: 1 G, CYCLICAL (DAY 1-DAY15)
     Route: 041
     Dates: start: 20080725, end: 20080812
  7. RITUXIMAB [Suspect]
     Active Substance: RITUXIMAB
     Dosage: 1 G, CYCLICAL (DAY 1-DAY15)
     Route: 041
     Dates: start: 20101126, end: 20101210
  8. RITUXIMAB [Suspect]
     Active Substance: RITUXIMAB
     Dosage: 1 G, UNK
     Route: 041
     Dates: start: 20120725, end: 20120725
  9. RITUXIMAB [Suspect]
     Active Substance: RITUXIMAB
     Dosage: 1 G, CYCLICAL (DAY 1-DAY15)
     Route: 041
     Dates: start: 201006, end: 20100701
  10. RITUXIMAB [Suspect]
     Active Substance: RITUXIMAB
     Dosage: 1 G, UNK
     Route: 041
     Dates: start: 201107, end: 201107
  11. CORTANCYL [Concomitant]
     Active Substance: PREDNISONE
     Dosage: 7 MG, QD
  12. CORTANCYL [Concomitant]
     Active Substance: PREDNISONE
     Dosage: 5 MG, QD
  13. BOCEPREVIR [Suspect]
     Active Substance: BOCEPREVIR
     Indication: HEPATITIS C
     Dosage: UNK
     Route: 048
     Dates: start: 20110416
  14. VIRAFERON [Suspect]
     Active Substance: INTERFERON ALFA-2B
     Indication: HEPATITIS C
     Dosage: UNK
     Route: 065
     Dates: start: 20110416
  15. RITUXIMAB [Suspect]
     Active Substance: RITUXIMAB
     Dosage: 1 G, CYCLICAL (DAY 1-DAY15)
     Route: 041
     Dates: start: 200903, end: 20090408
  16. CORTANCYL [Concomitant]
     Active Substance: PREDNISONE
     Dosage: 8 MG, QD

REACTIONS (11)
  - Pancytopenia [Recovered/Resolved]
  - Fatigue [Not Recovered/Not Resolved]
  - Weight decreased [Not Recovered/Not Resolved]
  - Dry eye [Not Recovered/Not Resolved]
  - Bronchitis [Recovered/Resolved]
  - Alopecia [Not Recovered/Not Resolved]
  - Diarrhoea [Not Recovered/Not Resolved]
  - Infection [Recovered/Resolved]
  - Rash erythematous [Not Recovered/Not Resolved]
  - Pancytopenia [Not Recovered/Not Resolved]
  - Transaminases increased [Not Recovered/Not Resolved]

NARRATIVE: CASE EVENT DATE: 200902
